FAERS Safety Report 12896325 (Version 1)
Quarter: 2016Q4

REPORT INFORMATION
  Report Type: Spontaneous
  Country: US (occurrence: US)
  Receive Date: 20161031
  Receipt Date: 20161031
  Transmission Date: 20170207
  Serious: No
  Sender: FDA-Public Use
  Company Number: US-JAZZ-2016-US-016416

PATIENT
  Sex: Female

DRUGS (20)
  1. MULTIVITAMIN [Concomitant]
     Active Substance: VITAMINS
  2. ADDERALL [Concomitant]
     Active Substance: AMPHETAMINE ASPARTATE\AMPHETAMINE SULFATE\DEXTROAMPHETAMINE SACCHARATE\DEXTROAMPHETAMINE SULFATE
  3. METHYLPHENIDATE CD [Concomitant]
     Active Substance: METHYLPHENIDATE HYDROCHLORIDE
  4. TIZANIDINE HCL [Concomitant]
     Active Substance: TIZANIDINE HYDROCHLORIDE
  5. XANAX [Concomitant]
     Active Substance: ALPRAZOLAM
  6. XYREM [Suspect]
     Active Substance: SODIUM OXYBATE
     Indication: NARCOLEPSY
     Dosage: 2.25 G, BID
     Route: 048
     Dates: start: 201507, end: 201507
  7. XYREM [Suspect]
     Active Substance: SODIUM OXYBATE
     Dosage: 3.75 G, SECOND DOSE
     Route: 048
     Dates: start: 201607
  8. ASPIRIN. [Concomitant]
     Active Substance: ASPIRIN
  9. FISH OIL EC [Concomitant]
  10. MELOXICAM. [Concomitant]
     Active Substance: MELOXICAM
  11. FISH OIL DR [Concomitant]
  12. PRILOSEC [Concomitant]
     Active Substance: OMEPRAZOLE MAGNESIUM
  13. XYREM [Suspect]
     Active Substance: SODIUM OXYBATE
     Dosage: DOSE ADJUSTMENTS
     Route: 048
     Dates: start: 201507, end: 201607
  14. LEVOTHYROXINE. [Concomitant]
     Active Substance: LEVOTHYROXINE
  15. PROVIGIL [Concomitant]
     Active Substance: MODAFINIL
  16. ESCITALOPRAM [Concomitant]
     Active Substance: ESCITALOPRAM OXALATE
  17. MODAFINIL. [Concomitant]
     Active Substance: MODAFINIL
  18. CLOBETASOL [Concomitant]
     Active Substance: CLOBETASOL
  19. XYREM [Suspect]
     Active Substance: SODIUM OXYBATE
     Dosage: 5.25 G, FIRST DOSE
     Route: 048
     Dates: start: 201607
  20. NEXIUM [Concomitant]
     Active Substance: ESOMEPRAZOLE MAGNESIUM

REACTIONS (6)
  - Beta-2 glycoprotein antibody positive [Unknown]
  - Thyroid hormones increased [Unknown]
  - Feeling abnormal [Unknown]
  - Cardiolipin antibody positive [Unknown]
  - Therapeutic response unexpected [Unknown]
  - Pre-existing condition improved [Unknown]
